FAERS Safety Report 12217618 (Version 9)
Quarter: 2017Q2

REPORT INFORMATION
  Report Type: Spontaneous
  Country: US (occurrence: US)
  Receive Date: 20160329
  Receipt Date: 20170411
  Transmission Date: 20170830
  Serious: Yes (Hospitalization, Congenital Anomaly, Other)
  Sender: FDA-Public Use
  Company Number: PHEH2016US007374

PATIENT
  Sex: Male

DRUGS (2)
  1. ZOFRAN [Suspect]
     Active Substance: ONDANSETRON HYDROCHLORIDE
     Indication: FOETAL EXPOSURE DURING PREGNANCY
     Route: 064
  2. ZOFRAN ODT [Suspect]
     Active Substance: ONDANSETRON HYDROCHLORIDE
     Indication: FOETAL EXPOSURE DURING PREGNANCY
     Dosage: MOTHER^S DOSE: 8 MG, PRN
     Route: 064

REACTIONS (23)
  - Congenital anomaly [Unknown]
  - Heart disease congenital [Unknown]
  - Cyst [Unknown]
  - Anxiety [Unknown]
  - Injury [Unknown]
  - Left-to-right cardiac shunt [Unknown]
  - Anal stenosis [Unknown]
  - Developmental delay [Unknown]
  - Fatigue [Unknown]
  - Pulmonary valve incompetence [Unknown]
  - Abdominal pain [Unknown]
  - Dyspnoea [Unknown]
  - Atrial septal defect [Unknown]
  - Foetal exposure during pregnancy [Unknown]
  - Rectal stenosis [Unknown]
  - Emotional distress [Unknown]
  - Respiratory distress [Unknown]
  - Left atrial enlargement [Unknown]
  - Pain [Unknown]
  - Anhedonia [Unknown]
  - Premature baby [Unknown]
  - Arrhythmia [Unknown]
  - Tinea capitis [Unknown]
